FAERS Safety Report 5608937-2 (Version None)
Quarter: 2008Q1

REPORT INFORMATION
  Report Type: 
  Country: None (occurrence: None)
  Receive Date: 20080129
  Receipt Date: 20080129
  Transmission Date: 20080703
  Serious: Yes (Other)
  Sender: FDA-Public Use
  Company Number: None

PATIENT
  Age: 54 Year
  Sex: Female
  Weight: 66.2252 kg

DRUGS (1)
  1. ZETIA [Suspect]
     Indication: HYPERTRIGLYCERIDAEMIA
     Dates: start: 20060915, end: 20071215

REACTIONS (2)
  - NO THERAPEUTIC RESPONSE [None]
  - RASH PRURITIC [None]
